FAERS Safety Report 16351710 (Version 1)
Quarter: 2019Q2

REPORT INFORMATION
  Report Type: Spontaneous
  Country: US (occurrence: US)
  Receive Date: 20190524
  Receipt Date: 20190524
  Transmission Date: 20190711
  Serious: No
  Sender: FDA-Public Use
  Company Number: US-NOVEN PHARMACEUTICALS, INC.-US2018000316

PATIENT

DRUGS (2)
  1. DAYTRANA [Suspect]
     Active Substance: METHYLPHENIDATE
     Indication: ATTENTION DEFICIT/HYPERACTIVITY DISORDER
     Dosage: UNK, UNKNOWN
     Route: 062
  2. DAYTRANA [Suspect]
     Active Substance: METHYLPHENIDATE
     Dosage: 20 MG, UNKNOWN
     Route: 062
     Dates: start: 201801

REACTIONS (10)
  - Disturbance in attention [Recovered/Resolved]
  - Therapy cessation [Not Recovered/Not Resolved]
  - Therapeutic product effect increased [Recovered/Resolved]
  - Product quality issue [Recovered/Resolved]
  - Abnormal behaviour [Unknown]
  - Product adhesion issue [Recovered/Resolved]
  - Obsessive-compulsive symptom [Unknown]
  - Restlessness [Unknown]
  - Change in sustained attention [Unknown]
  - Psychomotor hyperactivity [Unknown]

NARRATIVE: CASE EVENT DATE: 2017
